FAERS Safety Report 8475596-3 (Version None)
Quarter: 2012Q2

REPORT INFORMATION
  Report Type: 
  Country: None (occurrence: None)
  Receive Date: 20120628
  Receipt Date: 20120614
  Transmission Date: 20120825
  Serious: Yes (Hospitalization)
  Sender: FDA-Public Use
  Company Number: IT-MYLANLABS-2012S1012271

PATIENT
  Age: 80 Year
  Sex: Female

DRUGS (9)
  1. TENORETIC [Concomitant]
     Indication: HYPERTENSION
     Dosage: 100 AND 25 MG/DAY ATENOLOL/CHLORTALIDONE
     Route: 065
  2. AMLODIPINE [Concomitant]
     Indication: HYPERTENSION
     Dosage: 5 MG/DAY
     Route: 065
  3. LORAZEPAM [Concomitant]
     Route: 065
  4. GLICLAZIDE [Concomitant]
     Route: 065
  5. TIMOLOL MALEATE [Concomitant]
     Route: 065
  6. SIMVASTATIN [Concomitant]
     Route: 065
  7. PAROXETINE [Concomitant]
     Route: 065
  8. TICLOPIDINE HCL [Suspect]
     Indication: ARTERIAL STENOSIS
     Dosage: 250 MG/DAY
     Route: 065
  9. METFORMIN HCL [Concomitant]
     Route: 065

REACTIONS (2)
  - HYPERTENSIVE CRISIS [None]
  - SYSTOLIC HYPERTENSION [None]
